FAERS Safety Report 6140568-0 (Version None)
Quarter: 2009Q2

REPORT INFORMATION
  Report Type: 
  Country: None (occurrence: None)
  Receive Date: 20090402
  Receipt Date: 20090324
  Transmission Date: 20091009
  Serious: Yes (Hospitalization, Other)
  Sender: FDA-Public Use
  Company Number: GB-RANBAXY-2007RR-09568

PATIENT
  Age: 28 Year
  Sex: Male

DRUGS (6)
  1. CIPROFLOXACIN [Suspect]
     Dosage: 500 MG, BID
     Route: 048
  2. CEFAZOLIN AND DEXTROSE [Concomitant]
     Dosage: 1 G, UNK
  3. DIMENHYDRINATE [Concomitant]
  4. METRONIDAZOLE [Concomitant]
     Dosage: 500 MG, UNK
     Route: 065
  5. SULFASALAZINE [Concomitant]
  6. URSODIOL [Concomitant]
     Dosage: 1500 MG, UNK

REACTIONS (1)
  - MANIA [None]
